FAERS Safety Report 5777852-6 (Version None)
Quarter: 2008Q2

REPORT INFORMATION
  Report Type: 
  Country: None (occurrence: None)
  Receive Date: 20080601
  Receipt Date: 20080104
  Transmission Date: 20081010
  Serious: No
  Sender: FDA-Public Use
  Company Number: US200801000889

PATIENT
  Sex: Male

DRUGS (8)
  1. BYETTA [Suspect]
     Indication: TYPE 2 DIABETES MELLITUS
     Dosage: 5 UG, 2/D, SUBCUTANEOUS
     Route: 058
     Dates: start: 20071101
  2. EXENATIDE PEN, DISPOSABLE DEVICE (EXENATIDE PEN) PEN,DISPOSABLE [Concomitant]
  3. ACTOS [Concomitant]
  4. GLYPRIDE (GLIMEPIRIDE) [Concomitant]
  5. LISINOPRIL [Concomitant]
  6. LYRICA [Concomitant]
  7. HYZAAR [Concomitant]
  8. INFLUENZA VACCINE (INFLUENZA VACCINE) [Concomitant]

REACTIONS (2)
  - BACK PAIN [None]
  - PYREXIA [None]
